FAERS Safety Report 19040078 (Version 2)
Quarter: 2021Q2

REPORT INFORMATION
  Report Type: Spontaneous
  Country: FR (occurrence: FR)
  Receive Date: 20210323
  Receipt Date: 20210413
  Transmission Date: 20210717
  Serious: Yes (Death, Congenital Anomaly)
  Sender: FDA-Public Use
  Company Number: FR-TEVA-2021-FR-1892648

PATIENT
  Age: 0 Year
  Sex: Male

DRUGS (3)
  1. ELETRIPTAN. [Suspect]
     Active Substance: ELETRIPTAN
     Indication: MIGRAINE
     Dosage: 40 MG
     Route: 064
     Dates: start: 20201005, end: 20201215
  2. ALMOTRIPTAN BASE [Suspect]
     Active Substance: ALMOTRIPTAN
     Indication: MIGRAINE
     Dosage: 12.5 MG
     Route: 064
     Dates: start: 20200914, end: 20201005
  3. KETOPROFENE [Suspect]
     Active Substance: KETOPROFEN
     Indication: MIGRAINE
     Dosage: 100 MG
     Route: 064
     Dates: start: 20200914, end: 20201215

REACTIONS (2)
  - Talipes [Fatal]
  - Spina bifida [Fatal]

NARRATIVE: CASE EVENT DATE: 20201215
